FAERS Safety Report 24587203 (Version 2)
Quarter: 2025Q1

REPORT INFORMATION
  Report Type: Spontaneous
  Country: US (occurrence: US)
  Receive Date: 20241107
  Receipt Date: 20250326
  Transmission Date: 20250409
  Serious: No
  Sender: ALEXION PHARMACEUTICALS
  Company Number: US-AstraZeneca-CH-00739757AP

PATIENT

DRUGS (1)
  1. BREZTRI [Suspect]
     Active Substance: BUDESONIDE\FORMOTEROL\GLYCOPYRROLATE

REACTIONS (8)
  - Speech disorder [Unknown]
  - Device difficult to use [Unknown]
  - Device delivery system issue [Unknown]
  - Accidental exposure to product [Unknown]
  - Device defective [Unknown]
  - Device use issue [Unknown]
  - Device leakage [Unknown]
  - Product use issue [Unknown]
